FAERS Safety Report 9216450 (Version 1)
Quarter: 2013Q2

REPORT INFORMATION
  Report Type: Spontaneous
  Country: US (occurrence: US)
  Receive Date: 20130408
  Receipt Date: 20130408
  Transmission Date: 20140414
  Serious: Yes (Hospitalization, Other)
  Sender: FDA-Public Use
  Company Number: US-ELI_LILLY_AND_COMPANY-US201303008980

PATIENT
  Age: 38 Year
  Sex: Male
  Weight: 90.7 kg

DRUGS (3)
  1. CYMBALTA [Suspect]
     Indication: DEPRESSION
     Dosage: 60 MG, QD
     Route: 048
     Dates: start: 20120716
  2. LORAZEPAM [Concomitant]
     Indication: ANXIETY
     Dosage: 2 MG, PRN
     Dates: start: 200908
  3. CRESTOR [Concomitant]
     Indication: HYPERCHOLESTEROLAEMIA
     Dosage: 5 MG, QD
     Route: 048
     Dates: start: 20120716

REACTIONS (1)
  - Renal failure [Unknown]
